FAERS Safety Report 10916157 (Version 3)
Quarter: 2015Q2

REPORT INFORMATION
  Report Type: Spontaneous
  Country: NO (occurrence: NO)
  Receive Date: 20150316
  Receipt Date: 20150513
  Transmission Date: 20150821
  Serious: Yes (Death)
  Sender: FDA-Public Use
  Company Number: NO-CELGENE-NOR-2015030904

PATIENT
  Age: 66 Year
  Sex: Female

DRUGS (2)
  1. GEMCITABIN HOSPIRA [Concomitant]
     Indication: PANCREATIC CARCINOMA METASTATIC
     Route: 041
     Dates: start: 201311
  2. ABRAXANE [Suspect]
     Active Substance: PACLITAXEL
     Indication: PANCREATIC CARCINOMA METASTATIC
     Route: 041
     Dates: start: 2014

REACTIONS (1)
  - Pneumonitis [Fatal]

NARRATIVE: CASE EVENT DATE: 201406
